FAERS Safety Report 4369501-9 (Version None)
Quarter: 2004Q2

REPORT INFORMATION
  Report Type: 
  Country: None (occurrence: None)
  Receive Date: 20040603
  Receipt Date: 20040527
  Transmission Date: 20050107
  Serious: Yes (Life-Threatening, Hospitalization)
  Sender: FDA-Public Use
  Company Number: 200415517GDDC

PATIENT
  Age: 7 Year
  Sex: Male

DRUGS (1)
  1. DESMOSPRAY [Suspect]
     Indication: ENURESIS
     Route: 045
     Dates: start: 20040420, end: 20040422

REACTIONS (5)
  - COMA [None]
  - CONVULSION [None]
  - FEELING ABNORMAL [None]
  - HYPONATRAEMIA [None]
  - VOMITING [None]
